FAERS Safety Report 9268336 (Version 2)
Quarter: 2014Q2

REPORT INFORMATION
  Report Type: Report from Study
  Country: US (occurrence: US)
  Receive Date: 20130502
  Receipt Date: 20140409
  Transmission Date: 20141212
  Serious: No
  Sender: FDA-Public Use
  Company Number: US-ALEXION-A201202111

PATIENT
  Sex: 0

DRUGS (2)
  1. SOLIRIS [Suspect]
     Indication: PAROXYSMAL NOCTURNAL HAEMOGLOBINURIA
     Dosage: 900 MG, Q2W
     Route: 042
     Dates: start: 20121029
  2. CYCLOSPORIN [Concomitant]
     Indication: IMMUNOSUPPRESSION
     Dosage: 300 MG, QD
     Route: 048
     Dates: start: 20140108

REACTIONS (2)
  - Contusion [Unknown]
  - Back pain [Unknown]
